FAERS Safety Report 12003935 (Version 2)
Quarter: 2016Q1

REPORT INFORMATION
  Report Type: Spontaneous
  Country: FR (occurrence: FR)
  Receive Date: 20160204
  Receipt Date: 20160209
  Transmission Date: 20160526
  Serious: Yes (Death, Other)
  Sender: FDA-Public Use
  Company Number: FR-TAKEDA-2016MPI000614

PATIENT
  Age: 61 Year
  Sex: Female

DRUGS (4)
  1. ENDOXAN                            /00021101/ [Suspect]
     Active Substance: CYCLOPHOSPHAMIDE
     Indication: AMYLOIDOSIS
     Dosage: 50 MG, UNK
     Route: 048
     Dates: start: 20160104
  2. ENDOXAN                            /00021101/ [Suspect]
     Active Substance: CYCLOPHOSPHAMIDE
     Dosage: 500 MG, UNK
     Route: 048
     Dates: start: 20150904, end: 20150911
  3. VELCADE [Suspect]
     Active Substance: BORTEZOMIB
     Indication: AMYLOIDOSIS
     Dosage: 1.85 MG, UNK
     Route: 058
     Dates: start: 20150904
  4. DEXAMETHASONE. [Suspect]
     Active Substance: DEXAMETHASONE
     Indication: AMYLOIDOSIS
     Dosage: 40 MG, UNK
     Route: 048
     Dates: start: 20150904, end: 20160112

REACTIONS (6)
  - Diverticulitis [Fatal]
  - Off label use [Unknown]
  - Septic shock [Recovered/Resolved]
  - Septic shock [Fatal]
  - Diverticular perforation [Fatal]
  - Product use issue [Unknown]

NARRATIVE: CASE EVENT DATE: 20151220
